FAERS Safety Report 23913589 (Version 2)
Quarter: 2024Q2

REPORT INFORMATION
  Report Type: Spontaneous
  Country: US (occurrence: US)
  Receive Date: 20240529
  Receipt Date: 20240614
  Transmission Date: 20240715
  Serious: Yes (Other)
  Sender: FDA-Public Use
  Company Number: US-ALVOGEN-2024094661

PATIENT
  Sex: Female

DRUGS (4)
  1. FENTANYL [Suspect]
     Active Substance: FENTANYL\FENTANYL CITRATE
     Indication: Pain
     Dosage: EXPIRATION DATE: UU-DEC-2026?FIRST BOX?STRENGTH: 75MCG/HR
     Dates: start: 202404
  2. FENTANYL [Suspect]
     Active Substance: FENTANYL\FENTANYL CITRATE
     Indication: Pain
     Dosage: SECOND BOX
  3. FENTANYL [Suspect]
     Active Substance: FENTANYL\FENTANYL CITRATE
     Indication: Pain
     Dosage: STARTED COMPANY SUSPECT ON AN UNKNOWN DATE
  4. ZOFRAN [Concomitant]
     Active Substance: ONDANSETRON HYDROCHLORIDE
     Indication: Abdominal discomfort
     Dosage: STOMACH MEDICINE, RIGHT BEFORE FENTANYL PATCH

REACTIONS (8)
  - Dementia [Unknown]
  - Renal disorder [Unknown]
  - Cardiac disorder [Unknown]
  - Arthritis [Unknown]
  - Fibromyalgia [Unknown]
  - Gastritis [Unknown]
  - Product packaging quantity issue [Unknown]
  - Device use issue [Unknown]

NARRATIVE: CASE EVENT DATE: 20240101
